FAERS Safety Report 6097452-0 (Version None)
Quarter: 2009Q1

REPORT INFORMATION
  Report Type: 
  Country: None (occurrence: None)
  Receive Date: 20090227
  Receipt Date: 20080529
  Transmission Date: 20090719
  Serious: No
  Sender: FDA-Public Use
  Company Number: A0730206A

PATIENT
  Age: 37 Year
  Sex: Female

DRUGS (6)
  1. IMITREX [Suspect]
     Indication: MIGRAINE
     Dosage: 6MG AS REQUIRED
     Route: 058
     Dates: start: 19980101
  2. NORTREL 7/7/7 [Concomitant]
  3. ANTI-INFLAMMATORY [Concomitant]
  4. MELOXICAM [Concomitant]
  5. PHENERGAN [Concomitant]
  6. FLEXERIL [Concomitant]

REACTIONS (2)
  - DRUG INEFFECTIVE [None]
  - PRODUCT QUALITY ISSUE [None]
